FAERS Safety Report 16058200 (Version 1)
Quarter: 2019Q1

REPORT INFORMATION
  Report Type: Spontaneous
  Country: US (occurrence: US)
  Receive Date: 20190311
  Receipt Date: 20190311
  Transmission Date: 20190418
  Serious: No
  Sender: FDA-Public Use
  Company Number: US-VYERA PHARMACEUTICALS, LLC-2018VYE00043

PATIENT
  Sex: Male

DRUGS (4)
  1. DARAPRIM [Suspect]
     Active Substance: PYRIMETHAMINE
     Indication: HIV INFECTION
     Dosage: 50 MG, 1X/DAY
     Route: 048
     Dates: start: 20160502
  2. GENVOYA [Concomitant]
     Active Substance: COBICISTAT\ELVITEGRAVIR\EMTRICITABINE\TENOFOVIR ALAFENAMIDE FUMARATE
  3. SULFADIAZINE. [Concomitant]
     Active Substance: SULFADIAZINE
  4. LEUCOVORIN. [Concomitant]
     Active Substance: LEUCOVORIN

REACTIONS (1)
  - Skin exfoliation [Not Recovered/Not Resolved]
